FAERS Safety Report 5458482-2 (Version None)
Quarter: 2007Q3

REPORT INFORMATION
  Report Type: 
  Country: None (occurrence: None)
  Receive Date: 20070919
  Receipt Date: 20070328
  Transmission Date: 20080115
  Serious: Yes (Hospitalization)
  Sender: FDA-Public Use
  Company Number: US-ASTRAZENECA-2007UW06426

PATIENT
  Age: 56 Year
  Sex: Female

DRUGS (4)
  1. SEROQUEL [Suspect]
     Route: 048
     Dates: start: 20041001
  2. EFFEXOR [Concomitant]
  3. CLONAZEPAM [Concomitant]
  4. CLONIDINE [Concomitant]

REACTIONS (1)
  - PANCREATITIS CHRONIC [None]
